FAERS Safety Report 16735691 (Version 12)
Quarter: 2025Q1

REPORT INFORMATION
  Report Type: Spontaneous
  Country: US (occurrence: US)
  Receive Date: 20190823
  Receipt Date: 20250205
  Transmission Date: 20250409
  Serious: No
  Sender: PFIZER
  Company Number: US-PFIZER INC-2019359728

PATIENT
  Age: 78 Year
  Sex: Female

DRUGS (7)
  1. XELJANZ XR [Suspect]
     Active Substance: TOFACITINIB CITRATE
     Indication: Pain in extremity
     Dosage: 11 MG, 1X/DAY
     Dates: start: 2019
  2. XELJANZ XR [Suspect]
     Active Substance: TOFACITINIB CITRATE
     Indication: Arthritis
     Dosage: 11 MG, 1X/DAY
     Route: 048
  3. XELJANZ XR [Suspect]
     Active Substance: TOFACITINIB CITRATE
     Indication: Rheumatoid arthritis
  4. COZAAR [Concomitant]
     Active Substance: LOSARTAN POTASSIUM
  5. CHOLECALCIFEROL [Concomitant]
     Active Substance: CHOLECALCIFEROL
  6. VITAMIN C [Concomitant]
     Active Substance: ASCORBIC ACID
  7. SHINGRIX [Concomitant]
     Active Substance: RECOMBINANT VARICELLA ZOSTER VIRUS (VZV) GLYCOPROTEIN E
     Indication: Immunisation

REACTIONS (15)
  - Therapeutic response unexpected [Unknown]
  - Swelling [Unknown]
  - Asthenia [Unknown]
  - Somnolence [Unknown]
  - Alopecia [Recovering/Resolving]
  - Gingival pain [Unknown]
  - Muscle spasms [Unknown]
  - Fatigue [Unknown]
  - Blood cholesterol increased [Unknown]
  - Erythema [Unknown]
  - Rash [Unknown]
  - Condition aggravated [Unknown]
  - Arthralgia [Unknown]
  - Herpes zoster [Unknown]
  - Product dose omission in error [Unknown]
